FAERS Safety Report 9614409 (Version 1)
Quarter: 2013Q4

REPORT INFORMATION
  Report Type: Spontaneous
  Country: US (occurrence: None)
  Receive Date: 20131007
  Receipt Date: 20131007
  Transmission Date: 20140711
  Serious: Yes (Hospitalization)
  Sender: FDA-Public Use
  Company Number: None

PATIENT
  Age: 75 Year
  Sex: Male
  Weight: 127.3 kg

DRUGS (1)
  1. BORTEZOMIB [Suspect]
     Indication: WALDENSTROM^S MACROGLOBULINAEMIA
     Dates: start: 20130804, end: 20130804

REACTIONS (3)
  - Angioedema [None]
  - Insomnia [None]
  - Sleep apnoea syndrome [None]
